FAERS Safety Report 9127179 (Version 1)
Quarter: 2013Q1

REPORT INFORMATION
  Report Type: Spontaneous
  Country: US (occurrence: US)
  Receive Date: 20130228
  Receipt Date: 20130228
  Transmission Date: 20140127
  Serious: No
  Sender: FDA-Public Use
  Company Number: US-MYLANLABS-2012S1019716

PATIENT
  Age: 64 Year
  Sex: Female

DRUGS (1)
  1. ATENOLOL [Suspect]

REACTIONS (2)
  - Drug hypersensitivity [Unknown]
  - Hypotension [Unknown]
